FAERS Safety Report 6831546-4 (Version None)
Quarter: 2010Q3

REPORT INFORMATION
  Report Type: 
  Country: None (occurrence: None)
  Receive Date: 20100712
  Receipt Date: 20100629
  Transmission Date: 20110219
  Serious: Yes (Other)
  Sender: FDA-Public Use
  Company Number: PHHY2010US43533

PATIENT
  Sex: Female

DRUGS (5)
  1. FANAPT [Suspect]
     Dosage: 10 MG, BID
     Route: 048
     Dates: start: 20100614, end: 20100623
  2. CYMBALTA [Concomitant]
     Dosage: 60 MG, TID
  3. BUSPAR [Concomitant]
     Dosage: 10 MG, BID
  4. TRAZODONE [Concomitant]
     Dosage: 50 MG, UNK
  5. ATARIN [Concomitant]
     Dosage: UNK

REACTIONS (5)
  - DIZZINESS [None]
  - FAECAL INCONTINENCE [None]
  - HYPERACUSIS [None]
  - LOSS OF CONSCIOUSNESS [None]
  - URINARY INCONTINENCE [None]
